FAERS Safety Report 4500168-2 (Version None)
Quarter: 2004Q4

REPORT INFORMATION
  Report Type: 
  Country: None (occurrence: None)
  Receive Date: 20041112
  Receipt Date: 20030613
  Transmission Date: 20050328
  Serious: Yes (Hospitalization)
  Sender: FDA-Public Use
  Company Number: PHFR2003GB02404

PATIENT
  Age: 59 Year
  Sex: Male

DRUGS (4)
  1. TEGRETOL [Suspect]
     Indication: NEUROPATHIC PAIN
     Dosage: 1 G/DAY
  2. RAMIPRIL [Concomitant]
     Dosage: 10 MG/DAY
  3. SIMVASTATIN [Concomitant]
     Dosage: 20 MG/DAY
  4. ASPIRIN [Concomitant]
     Dosage: 75 MG/DAY

REACTIONS (10)
  - AFFECTIVE DISORDER [None]
  - DELUSION OF GRANDEUR [None]
  - DISINHIBITION [None]
  - DRUG WITHDRAWAL SYNDROME [None]
  - FLIGHT OF IDEAS [None]
  - INSOMNIA [None]
  - MANIA [None]
  - PSORIASIS [None]
  - PSYCHOMOTOR HYPERACTIVITY [None]
  - SPEECH DISORDER [None]
